FAERS Safety Report 7447128-X (Version None)
Quarter: 2011Q2

REPORT INFORMATION
  Report Type: 
  Country: None (occurrence: None)
  Receive Date: 20110429
  Receipt Date: 20110418
  Transmission Date: 20111010
  Serious: Yes (Hospitalization, Other)
  Sender: FDA-Public Use
  Company Number: US-ELI_LILLY_AND_COMPANY-US200911006344

PATIENT
  Sex: Female
  Weight: 48.526 kg

DRUGS (11)
  1. VICODIN [Concomitant]
  2. AMBIEN [Concomitant]
     Dosage: 5 MG, AS NEEDED
     Dates: start: 20091023
  3. DARVOCET-N 50 [Concomitant]
     Dosage: UNK, AS NEEDED
  4. FORTEO [Suspect]
     Dosage: 20 UG, DAILY (1/D)
  5. ACETYLSALICYLIC ACID SRT [Concomitant]
     Dosage: 1 G DAY
     Dates: start: 20020117, end: 20020808
  6. FOSAMAX [Concomitant]
     Dosage: 70G WEEKLY
     Dates: start: 20040719, end: 20091023
  7. FORTEO [Suspect]
     Indication: OSTEOPOROSIS
     Dosage: 20 UG, DAILY (1/D)
     Route: 058
  8. CALTRATE PLUS [Concomitant]
     Dosage: 600 MG, 2/D
     Dates: start: 20040719
  9. CELEBREX [Concomitant]
     Dosage: 200 MG, DAILY (1/D)
     Dates: start: 20091001, end: 20091023
  10. FORTEO [Suspect]
     Dosage: 20 UG, DAILY (1/D)
     Route: 058
  11. ACIPHEX [Concomitant]
     Dosage: 20 MG, DAILY (1/D)
     Dates: start: 20021020

REACTIONS (18)
  - DIARRHOEA [None]
  - MUSCLE SPASMS [None]
  - ASTHENIA [None]
  - FATIGUE [None]
  - MUSCULOSKELETAL PAIN [None]
  - JOINT INJURY [None]
  - PYREXIA [None]
  - BALANCE DISORDER [None]
  - GASTROINTESTINAL DISORDER [None]
  - URINARY TRACT INFECTION [None]
  - MELAENA [None]
  - MUSCULOSKELETAL DISCOMFORT [None]
  - DIZZINESS [None]
  - GASTROINTESTINAL INFECTION [None]
  - GASTROINTESTINAL MOTILITY DISORDER [None]
  - PEPTIC ULCER [None]
  - MALAISE [None]
  - ABDOMINAL PAIN UPPER [None]
